FAERS Safety Report 6804527-4 (Version None)
Quarter: 2010Q2

REPORT INFORMATION
  Report Type: 
  Country: None (occurrence: None)
  Receive Date: 20100628
  Receipt Date: 20100618
  Transmission Date: 20101027
  Serious: Yes (Other)
  Sender: FDA-Public Use
  Company Number: TH-ABBOTT-08P-155-0472372-00

PATIENT
  Sex: Female
  Weight: 55 kg

DRUGS (5)
  1. SEVORANE [Suspect]
     Indication: DRUG USE FOR UNKNOWN INDICATION
     Dosage: RANGE 1-2%
     Route: 055
     Dates: start: 20080819, end: 20080819
  2. SUCCINYLCHOLINE [Concomitant]
     Indication: DRUG USE FOR UNKNOWN INDICATION
     Route: 042
     Dates: start: 20080819, end: 20080819
  3. PAVULON [Concomitant]
     Indication: DRUG USE FOR UNKNOWN INDICATION
     Route: 042
     Dates: start: 20080819, end: 20080819
  4. MORPHINE [Concomitant]
     Indication: DRUG USE FOR UNKNOWN INDICATION
     Route: 042
     Dates: start: 20080819, end: 20080819
  5. O2:N20 [Concomitant]
     Indication: DRUG USE FOR UNKNOWN INDICATION
     Route: 055
     Dates: start: 20080819, end: 20080819

REACTIONS (4)
  - HYPOTENSION [None]
  - NAUSEA [None]
  - SUPRAVENTRICULAR EXTRASYSTOLES [None]
  - VOMITING [None]
